FAERS Safety Report 5506367-5 (Version None)
Quarter: 2007Q4

REPORT INFORMATION
  Report Type: 
  Country: None (occurrence: None)
  Receive Date: 20071101
  Receipt Date: 20071016
  Transmission Date: 20080405
  Serious: Yes (Hospitalization)
  Sender: FDA-Public Use
  Company Number: 2007002097

PATIENT
  Age: 63 Year
  Sex: Female

DRUGS (1)
  1. MACUGEN [Suspect]
     Indication: MACULAR DEGENERATION
     Dosage: 0.3 MG, Q6W, INTRA-VITREAL
     Dates: start: 20061109

REACTIONS (2)
  - IRIDOCYCLITIS [None]
  - OPEN ANGLE GLAUCOMA [None]
